FAERS Safety Report 7745466-4 (Version None)
Quarter: 2011Q3

REPORT INFORMATION
  Report Type: 
  Country: None (occurrence: None)
  Receive Date: 20110913
  Receipt Date: 20100325
  Transmission Date: 20111222
  Serious: No
  Sender: FDA-Public Use
  Company Number: CA-BAYER-201019012NA

PATIENT
  Age: 39 Year
  Sex: Female

DRUGS (1)
  1. MIRENA [Suspect]
     Dosage: 20 ?G/D, CONT
     Route: 015
     Dates: start: 20100322

REACTIONS (5)
  - ABDOMINAL PAIN [None]
  - PYREXIA [None]
  - DIZZINESS [None]
  - VAGINAL DISCHARGE [None]
  - NAUSEA [None]
